FAERS Safety Report 5590363-6 (Version None)
Quarter: 2008Q1

REPORT INFORMATION
  Report Type: 
  Country: None (occurrence: None)
  Receive Date: 20080114
  Receipt Date: 20080108
  Transmission Date: 20080703
  Serious: Yes (Other)
  Sender: FDA-Public Use
  Company Number: US-ROXANE LABORATORIES, INC-2008-BP-00386RO

PATIENT
  Age: 55 Year
  Sex: Male

DRUGS (2)
  1. METHADONE HCL [Suspect]
  2. INTERFERON [Suspect]
     Indication: HEPATITIS C

REACTIONS (2)
  - DRUG INTERACTION [None]
  - SLEEP APNOEA SYNDROME [None]
